FAERS Safety Report 6473205-6 (Version None)
Quarter: 2009Q4

REPORT INFORMATION
  Report Type: 
  Country: None (occurrence: None)
  Receive Date: 20091204
  Receipt Date: 20080509
  Transmission Date: 20100525
  Serious: No
  Sender: FDA-Public Use
  Company Number: AT-ELI_LILLY_AND_COMPANY-AT200804007092

PATIENT
  Age: 55 Year
  Sex: Male

DRUGS (3)
  1. CIALIS [Suspect]
     Indication: ERECTILE DYSFUNCTION
     Dosage: 20 MG, UNKNOWN
     Route: 065
     Dates: start: 20080101
  2. BETA BLOCKING AGENTS [Concomitant]
     Dosage: UNK, UNK
  3. STATIN [Concomitant]
     Dosage: UNK, UNK

REACTIONS (1)
  - OCULAR DISCOMFORT [None]
